FAERS Safety Report 12716921 (Version 1)
Quarter: 2016Q3

REPORT INFORMATION
  Report Type: Spontaneous
  Country: FR (occurrence: FR)
  Receive Date: 20160906
  Receipt Date: 20160906
  Transmission Date: 20161109
  Serious: Yes (Other)
  Sender: FDA-Public Use
  Company Number: FR-PFIZER INC-2016412256

PATIENT
  Age: 65 Year
  Sex: Female

DRUGS (9)
  1. DUROGESIC [Concomitant]
     Active Substance: FENTANYL
  2. AUGMENTIN [Concomitant]
     Active Substance: AMOXICILLIN\CLAVULANATE POTASSIUM
     Dosage: UNK
     Dates: start: 20160806
  3. AFINITOR [Concomitant]
     Active Substance: EVEROLIMUS
     Dosage: UNK
     Dates: end: 20160728
  4. LASILIX /00032601/ [Concomitant]
     Active Substance: FUROSEMIDE
  5. METHYLPREDNISOLONE. [Concomitant]
     Active Substance: METHYLPREDNISOLONE
  6. PARACETAMOL [Suspect]
     Active Substance: ACETAMINOPHEN
     Dosage: UNK
     Route: 048
     Dates: end: 20160803
  7. AROMASINE [Suspect]
     Active Substance: EXEMESTANE
     Dosage: UNK
     Route: 048
     Dates: end: 20160803
  8. LYTOS [Suspect]
     Active Substance: CLODRONATE DISODIUM
     Dosage: UNK
     Route: 048
     Dates: end: 20160803
  9. FRAGMINE [Concomitant]
     Active Substance: DALTEPARIN SODIUM

REACTIONS (2)
  - Hepatocellular injury [Unknown]
  - Cholestasis [Unknown]

NARRATIVE: CASE EVENT DATE: 20160803
